FAERS Safety Report 5193168-3 (Version None)
Quarter: 2006Q4

REPORT INFORMATION
  Report Type: 
  Country: None (occurrence: None)
  Receive Date: 20061228
  Receipt Date: 20060613
  Transmission Date: 20070319
  Serious: No
  Sender: FDA-Public Use
  Company Number: US-GLAXOSMITHKLINE-A0608853A

PATIENT
  Age: 76 Year
  Sex: Male

DRUGS (4)
  1. AVODART [Suspect]
     Dosage: .5MG PER DAY
     Route: 048
  2. PREDNISONE TAB [Suspect]
     Indication: ECZEMA
  3. PROTONIX [Concomitant]
  4. LUNESTA [Concomitant]

REACTIONS (3)
  - ECZEMA [None]
  - RASH [None]
  - SWELLING [None]
